FAERS Safety Report 21001827 (Version 2)
Quarter: 2022Q3

REPORT INFORMATION
  Report Type: Spontaneous
  Country: IN (occurrence: IN)
  Receive Date: 20220624
  Receipt Date: 20220920
  Transmission Date: 20221027
  Serious: Yes (Hospitalization, Other)
  Sender: FDA-Public Use
  Company Number: IN-WOCKHARDT BIO AG-2022WBA000073

PATIENT
  Age: 54 Year
  Sex: Female

DRUGS (1)
  1. MINOXIDIL [Suspect]
     Active Substance: MINOXIDIL
     Indication: Product used for unknown indication
     Dosage: 10 MILLILITER OF 5% STRENGTH
     Route: 048

REACTIONS (3)
  - Pleural effusion [Recovered/Resolved]
  - Respiratory distress [Recovering/Resolving]
  - Product administration error [Unknown]
